FAERS Safety Report 24821616 (Version 1)
Quarter: 2025Q1

REPORT INFORMATION
  Report Type: Spontaneous
  Country: US (occurrence: US)
  Receive Date: 20250108
  Receipt Date: 20250108
  Transmission Date: 20250409
  Serious: Yes (Other)
  Sender: SANOFI AVENTIS
  Company Number: US-SA-2025SA003817

PATIENT
  Age: 58 Year
  Sex: Female

DRUGS (29)
  1. REZUROCK [Suspect]
     Active Substance: BELUMOSUDIL
     Indication: Chronic graft versus host disease
     Dosage: 200 MG, QD
     Route: 048
  2. LACTOBACILLUS ACIDOPHILUS [Concomitant]
     Active Substance: LACTOBACILLUS ACIDOPHILUS
  3. ATOVAQUONE [Concomitant]
     Active Substance: ATOVAQUONE
  4. BECLOMETHASONE [Concomitant]
     Active Substance: BECLOMETHASONE
  5. BENADRYL [Concomitant]
     Active Substance: DIPHENHYDRAMINE HYDROCHLORIDE
  6. BENZONATATE [Concomitant]
     Active Substance: BENZONATATE
  7. BUDESONIDE [Concomitant]
     Active Substance: BUDESONIDE
  8. DEXAMETHASONE [Concomitant]
     Active Substance: DEXAMETHASONE
  9. DIFICID [Concomitant]
     Active Substance: FIDAXOMICIN
  10. GABAPENTIN [Concomitant]
     Active Substance: GABAPENTIN
  11. JAKAFI [Concomitant]
     Active Substance: RUXOLITINIB
  12. LEVOTHYROXINE [Concomitant]
     Active Substance: LEVOTHYROXINE
  13. LORATADINE [Concomitant]
     Active Substance: LORATADINE
  14. METAMUCIL [Concomitant]
     Active Substance: PLANTAGO SEED
  15. MUCINEX [Concomitant]
     Active Substance: GUAIFENESIN
  16. OMEGA 3 [Concomitant]
     Active Substance: CAPSAICIN
  17. POSACONAZOLE [Concomitant]
     Active Substance: POSACONAZOLE
  18. POTASSIUM CITRATE [Concomitant]
     Active Substance: POTASSIUM CITRATE
  19. PREDNISONE [Concomitant]
     Active Substance: PREDNISONE
  20. PROCHLORPERAZINE [Concomitant]
     Active Substance: PROCHLORPERAZINE
  21. TACROLIMUS [Concomitant]
     Active Substance: TACROLIMUS
  22. URSODIOL [Concomitant]
     Active Substance: URSODIOL
  23. VALACYCLOVIR [Concomitant]
     Active Substance: VALACYCLOVIR HYDROCHLORIDE
  24. WELLBUTRIN [Concomitant]
     Active Substance: BUPROPION HYDROCHLORIDE
  25. ZINC GLUCONATE [Concomitant]
     Active Substance: ZINC GLUCONATE
  26. CALCIUM\CHOLECALCIFEROL [Concomitant]
     Active Substance: CALCIUM\CHOLECALCIFEROL
  27. VITAMINS [Concomitant]
     Active Substance: VITAMINS
  28. NEOMYCIN AND POLYMYXIN B SULFATES AND HYDROCORTISONE [Concomitant]
     Active Substance: HYDROCORTISONE\NEOMYCIN SULFATE\POLYMYXIN B SULFATE
  29. MG PLUS PROTEIN [Concomitant]

REACTIONS (2)
  - Clostridium difficile infection [Unknown]
  - Ear infection [Unknown]
